FAERS Safety Report 19656687 (Version 1)
Quarter: 2021Q3

REPORT INFORMATION
  Report Type: Spontaneous
  Country: US (occurrence: US)
  Receive Date: 20210804
  Receipt Date: 20210804
  Transmission Date: 20211014
  Serious: No
  Sender: FDA-Public Use
  Company Number: US-GW PHARMA-202107USGW03713

PATIENT

DRUGS (1)
  1. EPIDIOLEX [Suspect]
     Active Substance: CANNABIDIOL
     Indication: EPILEPSY
     Dosage: 1100 MILLIGRAM
     Route: 048
     Dates: start: 20210707, end: 202107

REACTIONS (1)
  - Reaction to food additive [Unknown]

NARRATIVE: CASE EVENT DATE: 202107
